FAERS Safety Report 5818365-2 (Version None)
Quarter: 2008Q3

REPORT INFORMATION
  Report Type: 
  Country: None (occurrence: None)
  Receive Date: 20080722
  Receipt Date: 20080710
  Transmission Date: 20090109
  Serious: Yes (Other)
  Sender: FDA-Public Use
  Company Number: CA-PFIZER INC-2008057455

PATIENT
  Age: 64 Year
  Sex: Female
  Weight: 60 kg

DRUGS (5)
  1. SU-011,248 [Suspect]
     Indication: B-CELL LYMPHOMA
     Route: 048
  2. ACETAMINOPHEN [Suspect]
  3. IBUPROFEN [Suspect]
  4. OMEPRAZOLE [Concomitant]
  5. SENOKOT [Concomitant]

REACTIONS (1)
  - HEPATIC FAILURE [None]
